FAERS Safety Report 19287634 (Version 1)
Quarter: 2021Q2

REPORT INFORMATION
  Report Type: Spontaneous
  Country: IT (occurrence: IT)
  Receive Date: 20210521
  Receipt Date: 20210521
  Transmission Date: 20210717
  Serious: Yes (Other)
  Sender: FDA-Public Use
  Company Number: IT-AMGEN-ITASP2021075888

PATIENT
  Age: 63 Year
  Sex: Female

DRUGS (7)
  1. CARDIOASPIRIN [Concomitant]
     Active Substance: ASPIRIN
     Dosage: UNK
  2. CACIT [CALCIUM CARBONATE] [Concomitant]
     Active Substance: CALCIUM CARBONATE
     Dosage: UNK
  3. DENOSUMAB [Suspect]
     Active Substance: DENOSUMAB
     Indication: METASTASES TO BONE
     Dosage: 120 MILLIGRAM
     Route: 058
     Dates: start: 20190501, end: 20210503
  4. TOTALIP [Concomitant]
     Active Substance: ATORVASTATIN
     Dosage: UNK
  5. DIBASE [Concomitant]
     Active Substance: CHOLECALCIFEROL
     Dosage: UNK
  6. TRIATEC [LOSARTAN POTASSIUM] [Concomitant]
     Active Substance: LOSARTAN POTASSIUM
     Dosage: UNK
  7. CONGESCOR [Concomitant]
     Active Substance: BISOPROLOL
     Dosage: UNK

REACTIONS (2)
  - Osteonecrosis of jaw [Not Recovered/Not Resolved]
  - Exposed bone in jaw [Not Recovered/Not Resolved]

NARRATIVE: CASE EVENT DATE: 20210503
